FAERS Safety Report 6906416-3 (Version None)
Quarter: 2010Q3

REPORT INFORMATION
  Report Type: 
  Country: None (occurrence: None)
  Receive Date: 20100804
  Receipt Date: 20100729
  Transmission Date: 20110219
  Serious: Yes (Hospitalization)
  Sender: FDA-Public Use
  Company Number: A0873852A

PATIENT
  Age: 61 Year
  Sex: Female

DRUGS (1)
  1. AVANDIA [Suspect]
     Dosage: 8MG PER DAY
     Route: 048
     Dates: start: 20000101, end: 20060701

REACTIONS (4)
  - AMNESIA [None]
  - CARDIAC DISORDER [None]
  - HYPERTENSION [None]
  - SILENT MYOCARDIAL INFARCTION [None]
